FAERS Safety Report 21696581 (Version 1)
Quarter: 2022Q4

REPORT INFORMATION
  Report Type: Report from Study
  Country: US (occurrence: US)
  Receive Date: 20221207
  Receipt Date: 20221207
  Transmission Date: 20230113
  Serious: No
  Sender: FDA-Public Use
  Company Number: US-ABBVIE-4207063

PATIENT
  Age: 62 Year
  Sex: Female

DRUGS (2)
  1. SKYRIZI [Suspect]
     Active Substance: RISANKIZUMAB-RZAA
     Indication: Psoriasis
     Dosage: WEEK 0
     Route: 058
     Dates: start: 20220905
  2. Moderna [Concomitant]
     Indication: COVID-19 immunisation
     Dosage: 1 IN 1 DAY
     Route: 030

REACTIONS (4)
  - Bronchitis [Recovered/Resolved]
  - Unevaluable event [Recovering/Resolving]
  - Nausea [Recovered/Resolved]
  - Influenza [Recovered/Resolved]

NARRATIVE: CASE EVENT DATE: 20221101
